FAERS Safety Report 9843729 (Version 1)
Quarter: 2014Q1

REPORT INFORMATION
  Report Type: Spontaneous
  Country: US (occurrence: US)
  Receive Date: 20140126
  Receipt Date: 20140126
  Transmission Date: 20141002
  Serious: No
  Sender: FDA-Public Use
  Company Number: US-009507513-1401USA008060

PATIENT
  Sex: Male

DRUGS (5)
  1. VYTORIN [Suspect]
     Indication: BLOOD CHOLESTEROL INCREASED
     Dosage: UNK, QD
     Route: 048
     Dates: start: 2008, end: 201309
  2. ATENOLOL [Concomitant]
     Dosage: UNK
  3. SERTRALINE HYDROCHLORIDE [Concomitant]
     Dosage: UNK
  4. ASPIRIN [Concomitant]
     Dosage: UNK
  5. VITAMIN D (UNSPECIFIED) [Concomitant]
     Dosage: UNK

REACTIONS (1)
  - Liver function test abnormal [Recovered/Resolved]
